FAERS Safety Report 9717485 (Version 2)
Quarter: 2013Q4

REPORT INFORMATION
  Report Type: Spontaneous
  Country: US (occurrence: US)
  Receive Date: 20131127
  Receipt Date: 20131127
  Transmission Date: 20140711
  Serious: No
  Sender: FDA-Public Use
  Company Number: US-GILEAD-2008-0019658

PATIENT
  Sex: Female
  Weight: 106.59 kg

DRUGS (15)
  1. LETAIRIS [Suspect]
     Route: 048
     Dates: start: 20081120, end: 20090222
  2. SPIRIVA [Concomitant]
     Route: 055
  3. ALBUTEROL [Concomitant]
     Route: 055
  4. GLIPIZIDE [Concomitant]
     Route: 048
  5. METFORMIN [Concomitant]
     Route: 048
  6. BENICAR [Concomitant]
     Route: 048
  7. COENZYME [Concomitant]
     Route: 048
  8. VYTORIN [Concomitant]
     Route: 048
  9. AMITRIPTYLINE [Concomitant]
     Route: 048
  10. CARTIA XT [Concomitant]
     Route: 048
  11. POTASSIUM CHLORIDE [Concomitant]
     Route: 048
  12. FERROUS SULFATE [Concomitant]
     Route: 048
  13. MORPHINE SULFATE [Concomitant]
     Route: 048
  14. ASPIRIN [Concomitant]
     Route: 048
  15. VITAMIN E [Concomitant]
     Route: 048

REACTIONS (3)
  - Heart rate increased [Recovered/Resolved]
  - Fatigue [Recovered/Resolved]
  - Dyspnoea exertional [Recovered/Resolved]
